FAERS Safety Report 18681262 (Version 2)
Quarter: 2021Q1

REPORT INFORMATION
  Report Type: Spontaneous
  Country: PT (occurrence: PT)
  Receive Date: 20201229
  Receipt Date: 20210106
  Transmission Date: 20210419
  Serious: Yes (Life-Threatening, Other)
  Sender: FDA-Public Use
  Company Number: PT-GILEAD-2020-0510924

PATIENT
  Age: 60 Year
  Sex: Male

DRUGS (3)
  1. VEKLURY [Suspect]
     Active Substance: REMDESIVIR
     Indication: COVID-19 TREATMENT
     Dosage: 200?MG LOADING DOSE ON 1ST DAY AND 100 MG/DAY FOR THE REMAINING 9 DAYS
     Route: 042
     Dates: start: 20201012, end: 20201012
  2. VEKLURY [Suspect]
     Active Substance: REMDESIVIR
     Dosage: 200?MG LOADING DOSE ON 1ST DAY AND 100 MG/DAY FOR THE REMAINING 9 DAYS
     Route: 042
     Dates: start: 20201013, end: 20201021
  3. OXYGEN. [Concomitant]
     Active Substance: OXYGEN

REACTIONS (5)
  - Cardiac failure [Recovered/Resolved]
  - Dyspnoea [Recovered/Resolved]
  - Sinus bradycardia [Recovered/Resolved]
  - COVID-19 treatment [Recovered/Resolved]
  - Chest pain [Recovered/Resolved]

NARRATIVE: CASE EVENT DATE: 20201012
